FAERS Safety Report 8676894 (Version 2)
Quarter: 2013Q4

REPORT INFORMATION
  Report Type: Spontaneous
  Country: US (occurrence: US)
  Receive Date: 20120723
  Receipt Date: 20131031
  Transmission Date: 20140711
  Serious: No
  Sender: FDA-Public Use
  Company Number: US-009507513-2012SP017914

PATIENT
  Sex: Female

DRUGS (3)
  1. PEG-INTRON [Suspect]
     Indication: HEPATITIS C
     Dosage: 120 ?G, QW
     Dates: start: 2012
  2. MK-8908 [Suspect]
  3. PAXIL [Concomitant]

REACTIONS (5)
  - Insomnia [Recovering/Resolving]
  - Asthenia [Recovering/Resolving]
  - Influenza like illness [Recovering/Resolving]
  - Fatigue [Recovering/Resolving]
  - Application site reaction [Recovering/Resolving]
